FAERS Safety Report 6394480-2 (Version None)
Quarter: 2009Q4

REPORT INFORMATION
  Report Type: 
  Country: None (occurrence: None)
  Receive Date: 20091009
  Receipt Date: 20090930
  Transmission Date: 20100525
  Serious: Yes (Death, Hospitalization, Other)
  Sender: FDA-Public Use
  Company Number: US-BAYER-200933640NA

PATIENT
  Age: 64 Year
  Sex: Male

DRUGS (6)
  1. BETASERON [Suspect]
     Indication: SECONDARY PROGRESSIVE MULTIPLE SCLEROSIS
     Dates: start: 20070101
  2. ALEVE [Concomitant]
     Indication: PAIN
     Dosage: TOTAL DAILY DOSE: 2 DF  UNIT DOSE: 1 DF
     Route: 048
     Dates: end: 20080515
  3. PROXYPHENE-N/APAP [Concomitant]
     Dosage: UNIT DOSE: 1 DF
     Route: 048
  4. PROVIGIL [Concomitant]
  5. BACLOFEN [Concomitant]
  6. GNC MULTIPLE VITAMIN [Concomitant]

REACTIONS (5)
  - OEDEMA PERIPHERAL [None]
  - PULMONARY HAEMORRHAGE [None]
  - RENAL FAILURE [None]
  - SKIN ULCER [None]
  - WEGENER'S GRANULOMATOSIS [None]
